FAERS Safety Report 25863104 (Version 1)
Quarter: 2025Q3

REPORT INFORMATION
  Report Type: Spontaneous
  Country: AU (occurrence: AU)
  Receive Date: 20250930
  Receipt Date: 20250930
  Transmission Date: 20251021
  Serious: Yes (Hospitalization, Other)
  Sender: SANDOZ
  Company Number: AU-JNJFOC-20250821944

PATIENT

DRUGS (3)
  1. BENZTROPINE [Suspect]
     Active Substance: BENZTROPINE
     Indication: Product used for unknown indication
     Route: 065
  2. RISPERIDONE [Suspect]
     Active Substance: RISPERIDONE
     Route: 065
  3. RISPERIDONE [Suspect]
     Active Substance: RISPERIDONE
     Indication: Product used for unknown indication
     Route: 065

REACTIONS (11)
  - Agitation [Unknown]
  - Depressed level of consciousness [Unknown]
  - Dystonia [Unknown]
  - Electrocardiogram QT prolonged [Unknown]
  - Hypotension [Unknown]
  - Restlessness [Unknown]
  - Seizure [Unknown]
  - Somnolence [Unknown]
  - Tachycardia [Unknown]
  - Urinary retention [Unknown]
  - Off label use [Unknown]
